FAERS Safety Report 14266377 (Version 1)
Quarter: 2017Q4

REPORT INFORMATION
  Report Type: Spontaneous
  Country: CN (occurrence: CN)
  Receive Date: 20171210
  Receipt Date: 20171210
  Transmission Date: 20180321
  Serious: Yes (Hospitalization)
  Sender: FDA-Public Use
  Company Number: PHHY2017CN179974

PATIENT
  Age: 68 Year
  Sex: Female

DRUGS (4)
  1. EXEMESTANE. [Concomitant]
     Active Substance: EXEMESTANE
     Indication: METASTASES TO BONE
  2. EXEMESTANE. [Concomitant]
     Active Substance: EXEMESTANE
     Indication: BREAST CANCER FEMALE
     Dosage: UNK
     Route: 065
     Dates: start: 201611
  3. EVEROLIMUS. [Suspect]
     Active Substance: EVEROLIMUS
     Indication: METASTASES TO BONE
  4. EVEROLIMUS. [Suspect]
     Active Substance: EVEROLIMUS
     Indication: BREAST CANCER FEMALE
     Dosage: UNK
     Route: 065
     Dates: start: 201611

REACTIONS (4)
  - Mycobacterial infection [Unknown]
  - Jejunal ulcer perforation [Unknown]
  - Pyrexia [Unknown]
  - Granuloma [Unknown]
